FAERS Safety Report 4346680-0 (Version None)
Quarter: 2004Q2

REPORT INFORMATION
  Report Type: 
  Country: None (occurrence: None)
  Receive Date: 20040426
  Receipt Date: 20040416
  Transmission Date: 20050107
  Serious: Yes (Other)
  Sender: FDA-Public Use
  Company Number: BR-ROCHE-364808

PATIENT
  Age: 5 Year
  Sex: Female
  Weight: 20 kg

DRUGS (4)
  1. ROCEPHIN [Suspect]
     Indication: MENINGITIS
     Route: 042
     Dates: start: 20040401, end: 20040415
  2. AMPICILLIN [Concomitant]
     Indication: MENINGITIS
     Route: 042
     Dates: start: 20040401, end: 20040406
  3. PENICILLIN [Concomitant]
     Indication: MENINGITIS
     Route: 042
     Dates: start: 20040407
  4. CHLORAMPHENICOL [Concomitant]
     Indication: MENINGITIS
     Route: 042
     Dates: start: 20040407

REACTIONS (1)
  - CHOLELITHIASIS [None]
